FAERS Safety Report 7414871-8 (Version None)
Quarter: 2011Q2

REPORT INFORMATION
  Report Type: 
  Country: None (occurrence: None)
  Receive Date: 20110414
  Receipt Date: 20110406
  Transmission Date: 20111010
  Serious: Yes (Death, Other)
  Sender: FDA-Public Use
  Company Number: VE-GENZYME-CLOF-1001546

PATIENT
  Age: 40 Day

DRUGS (2)
  1. CLOLAR [Suspect]
     Indication: ACUTE LYMPHOCYTIC LEUKAEMIA
     Dosage: UNK
     Route: 042
     Dates: start: 20100809
  2. CLOLAR [Suspect]
     Indication: ACUTE LEUKAEMIA

REACTIONS (5)
  - ACUTE RESPIRATORY FAILURE [None]
  - FEBRILE NEUTROPENIA [None]
  - HEPATOTOXICITY [None]
  - PULMONARY SEPSIS [None]
  - LOWER RESPIRATORY TRACT INFECTION [None]
